FAERS Safety Report 6297347-3 (Version None)
Quarter: 2009Q3

REPORT INFORMATION
  Report Type: 
  Country: None (occurrence: None)
  Receive Date: 20090805
  Receipt Date: 20090729
  Transmission Date: 20100115
  Serious: Yes (Hospitalization, Other)
  Sender: FDA-Public Use
  Company Number: JP-JNJFOC-20090403546

PATIENT
  Sex: Male
  Weight: 24.49 kg

DRUGS (12)
  1. DUROTEP MT PATCH [Suspect]
     Indication: CANCER PAIN
     Route: 062
  2. MORPHINE HYDROCHLORIDE [Suspect]
     Indication: DRUG USE FOR UNKNOWN INDICATION
     Route: 058
  3. TS-1 [Concomitant]
     Route: 048
  4. GASMOTIN [Concomitant]
     Route: 048
  5. CEROCRAL [Concomitant]
     Route: 048
  6. MAGMITT [Concomitant]
     Route: 048
  7. NOVAMIN [Concomitant]
     Route: 048
  8. PARIET [Concomitant]
     Route: 048
  9. VOLTAREN [Concomitant]
     Route: 048
  10. DRAMAMINE [Concomitant]
     Route: 048
  11. GASTER [Concomitant]
     Route: 048
  12. MUCOSAL (AMBROXOL HYDROCHLORIDE) [Concomitant]
     Route: 048

REACTIONS (2)
  - EOSINOPHIL COUNT INCREASED [None]
  - NEUTROPHILIA [None]
